FAERS Safety Report 8342830-X (Version None)
Quarter: 2012Q2

REPORT INFORMATION
  Report Type: 
  Country: None (occurrence: None)
  Receive Date: 20120504
  Receipt Date: 20120504
  Transmission Date: 20120825
  Serious: Yes (Hospitalization)
  Sender: FDA-Public Use
  Company Number: None

PATIENT
  Age: 81 Year
  Sex: Male
  Weight: 96.1 kg

DRUGS (2)
  1. PIPERACILLIN AND TAZOBACTAM [Suspect]
     Indication: CHOLECYSTITIS
     Dosage: 50 ML QID IV
     Route: 042
     Dates: start: 20120308, end: 20120314
  2. AMOXICILLIN AND CLAVULANATE POTASSIUM [Suspect]
     Indication: CHOLECYSTITIS
     Dosage: 1 TAB BID PO
     Route: 048
     Dates: start: 20120314, end: 20120319

REACTIONS (1)
  - CLOSTRIDIUM DIFFICILE COLITIS [None]
